FAERS Safety Report 19454702 (Version 1)
Quarter: 2021Q2

REPORT INFORMATION
  Report Type: Spontaneous
  Country: PL (occurrence: PL)
  Receive Date: 20210623
  Receipt Date: 20210623
  Transmission Date: 20210717
  Serious: Yes (Other)
  Sender: FDA-Public Use
  Company Number: PL-ASTRAZENECA-2021A541329

PATIENT
  Sex: Male

DRUGS (2)
  1. OLAPARIB. [Suspect]
     Active Substance: OLAPARIB
     Indication: PROSTATIC ADENOMA
     Route: 048
     Dates: start: 20201118, end: 202103
  2. DOCETAXEL. [Concomitant]
     Active Substance: DOCETAXEL

REACTIONS (2)
  - Anaemia [Unknown]
  - Malignant neoplasm progression [Unknown]
